FAERS Safety Report 5505317-5 (Version None)
Quarter: 2007Q4

REPORT INFORMATION
  Report Type: 
  Country: None (occurrence: None)
  Receive Date: 20071102
  Receipt Date: 20071025
  Transmission Date: 20080405
  Serious: Yes (Hospitalization)
  Sender: FDA-Public Use
  Company Number: B0488135A

PATIENT
  Age: 67 Year
  Sex: Female
  Weight: 61.9 kg

DRUGS (2)
  1. LAPATINIB [Suspect]
     Dosage: 1250MG PER DAY
     Route: 048
     Dates: start: 20070827, end: 20070915
  2. CAPECITABINE [Suspect]
     Dosage: 3150MG PER DAY
     Route: 048
     Dates: start: 20070827, end: 20070909

REACTIONS (3)
  - ABDOMINAL DISCOMFORT [None]
  - DEHYDRATION [None]
  - ENTERITIS [None]
